FAERS Safety Report 18935635 (Version 1)
Quarter: 2021Q1

REPORT INFORMATION
  Report Type: Report from Study
  Country: GB (occurrence: GB)
  Receive Date: 20210224
  Receipt Date: 20210224
  Transmission Date: 20210420
  Serious: Yes (Other)
  Sender: FDA-Public Use
  Company Number: GB-TEVA-2021-GB-1880563

PATIENT
  Age: 32 Year
  Sex: Male

DRUGS (4)
  1. PLEGRIDY [Suspect]
     Active Substance: PEGINTERFERON BETA-1A
     Indication: RELAPSING-REMITTING MULTIPLE SCLEROSIS
     Dosage: INITIATION 63MCG
     Route: 058
     Dates: start: 20190718
  2. PLEGRIDY [Suspect]
     Active Substance: PEGINTERFERON BETA-1A
     Dosage: 125 MICROGRAM
     Route: 058
     Dates: start: 20190708
  3. DOXYCYCLINE. [Concomitant]
     Active Substance: DOXYCYCLINE
     Indication: EPIDIDYMITIS
     Route: 065
  4. DIAZEPAM. [Suspect]
     Active Substance: DIAZEPAM
     Indication: ANXIETY
     Route: 065

REACTIONS (12)
  - Pruritus [Not Recovered/Not Resolved]
  - Pain [Recovered/Resolved]
  - Hot flush [Not Recovered/Not Resolved]
  - Epididymitis [Recovered/Resolved]
  - Lack of injection site rotation [Not Recovered/Not Resolved]
  - Burning sensation [Not Recovered/Not Resolved]
  - Nightmare [Recovered/Resolved]
  - Dry skin [Not Recovered/Not Resolved]
  - Injection site bruising [Not Recovered/Not Resolved]
  - Injection site reaction [Not Recovered/Not Resolved]
  - Hypersensitivity [Recovered/Resolved]
  - Headache [Not Recovered/Not Resolved]

NARRATIVE: CASE EVENT DATE: 20200109
